FAERS Safety Report 23772194 (Version 2)
Quarter: 2025Q4

REPORT INFORMATION
  Report Type: Spontaneous
  Country: US (occurrence: US)
  Receive Date: 20240423
  Receipt Date: 20251003
  Transmission Date: 20260117
  Serious: Yes (Other)
  Sender: DR REDDYS
  Company Number: None

PATIENT
  Age: 49 Year
  Sex: Male

DRUGS (3)
  1. HEPARIN [Suspect]
     Active Substance: HEPARIN SODIUM
     Indication: Thrombosis prophylaxis
     Dosage: 5 DAYS OF SUBCUTANEOUS HEPARIN FOR VTE PROPHYLAXIS DURING A SEPARATE ADMISSION 7 DAYS BEFORE THE CUR
     Route: 058
  2. HEPARIN [Suspect]
     Active Substance: HEPARIN SODIUM
     Dosage: AT CURRENT ADMISSION
     Route: 058
  3. MILRINONE [Concomitant]
     Active Substance: MILRINONE
     Indication: Peripheral swelling

REACTIONS (3)
  - Anti-platelet factor 4 antibody positive [Recovered/Resolved]
  - Deep vein thrombosis [Recovered/Resolved]
  - Pulmonary embolism [Recovered/Resolved]
